FAERS Safety Report 10614683 (Version 4)
Quarter: 2017Q2

REPORT INFORMATION
  Report Type: Spontaneous
  Country: FR (occurrence: FR)
  Receive Date: 20141130
  Receipt Date: 20170404
  Transmission Date: 20170829
  Serious: Yes (Death, Hospitalization)
  Sender: FDA-Public Use
  Company Number: FR-ROCHE-1498685

PATIENT
  Age: 65 Year
  Sex: Female

DRUGS (10)
  1. METHOTREXATE. [Concomitant]
     Active Substance: METHOTREXATE
     Indication: RHEUMATOID ARTHRITIS
     Route: 065
     Dates: start: 20121203, end: 201307
  2. MINI-SINTROM [Concomitant]
     Active Substance: ACENOCOUMAROL
  3. AMAREL [Concomitant]
     Active Substance: GLIMEPIRIDE
  4. ROACTEMRA [Suspect]
     Active Substance: TOCILIZUMAB
     Indication: RHEUMATOID ARTHRITIS
     Route: 042
     Dates: start: 20121203, end: 20141002
  5. LASILIX [Concomitant]
     Active Substance: FUROSEMIDE
  6. TEMERIT [Concomitant]
     Active Substance: NEBIVOLOL
  7. DAFALGAN CODEINE [Concomitant]
     Active Substance: ACETAMINOPHEN\CODEINE PHOSPHATE
  8. UVEDOSE [Concomitant]
     Active Substance: CHOLECALCIFEROL
  9. FLODIL (FRANCE) [Concomitant]
  10. MICARDIS [Concomitant]
     Active Substance: TELMISARTAN

REACTIONS (2)
  - Amyotrophic lateral sclerosis [Fatal]
  - Neuropathy peripheral [Not Recovered/Not Resolved]

NARRATIVE: CASE EVENT DATE: 201301
